FAERS Safety Report 5726602-8 (Version None)
Quarter: 2008Q2

REPORT INFORMATION
  Report Type: 
  Country: None (occurrence: None)
  Receive Date: 20080501
  Receipt Date: 20080423
  Transmission Date: 20081010
  Serious: Yes (Other)
  Sender: FDA-Public Use
  Company Number: APP200800204

PATIENT
  Age: 41 Year
  Sex: Male

DRUGS (7)
  1. HEPARIN SODIUM INJECTION [Suspect]
     Indication: PERITONEAL DIALYSIS
     Dosage: 3000 USP UNITS, INTRAPERITONEAL
     Route: 033
     Dates: start: 20080303, end: 20080303
  2. RENAGEL [Concomitant]
  3. SENSIPAR (CINACALCET HYDROCHLORIDE) [Concomitant]
  4. PHOSLO [Concomitant]
  5. ALLOPURINOL [Concomitant]
  6. NEPHRACAPS (NEPHROCAPS) [Concomitant]
  7. ANTACID (DIOVOL) [Concomitant]

REACTIONS (4)
  - ABDOMINAL PAIN [None]
  - DISEASE PROGRESSION [None]
  - NAUSEA [None]
  - RENAL FAILURE CHRONIC [None]
